FAERS Safety Report 8023379-0 (Version None)
Quarter: 2012Q1

REPORT INFORMATION
  Report Type: 
  Country: None (occurrence: None)
  Receive Date: 20120104
  Receipt Date: 20120102
  Transmission Date: 20120608
  Serious: Yes (Hospitalization, Other)
  Sender: FDA-Public Use
  Company Number: CA-PFIZER INC-2011205467

PATIENT
  Age: 42 Year
  Sex: Female

DRUGS (10)
  1. INDAPAMIDE [Concomitant]
     Indication: HYPERTENSION
     Dosage: UNK
  2. EFFEXOR [Suspect]
     Dosage: 150 MG, 1X/DAY
     Route: 048
  3. SYNTHROID [Concomitant]
     Indication: THYROID DISORDER
     Dosage: UNK
  4. EFFEXOR [Suspect]
     Indication: ANXIETY
     Dosage: 75 MG, 1X/DAY
     Route: 048
  5. EFFEXOR [Suspect]
     Dosage: 37.5 MG, 1X/DAY
     Dates: start: 20110101, end: 20110101
  6. EFFEXOR [Suspect]
     Dosage: 37.5 MG, ALTERNATE DAY
     Route: 048
     Dates: start: 20110101, end: 20111201
  7. ALCOHOL [Suspect]
     Dosage: UNK
  8. EFFEXOR [Suspect]
     Indication: DEPRESSION
     Dosage: 150 MG, 1X/DAY
     Route: 048
     Dates: start: 20050101
  9. RAMIPRIL [Concomitant]
     Indication: HYPERTENSION
     Dosage: UNK
  10. EFFEXOR [Suspect]
     Dosage: 75 MG, 1X/DAY
     Route: 048
     Dates: start: 20110801, end: 20110101

REACTIONS (15)
  - SUICIDAL IDEATION [None]
  - DEPENDENCE [None]
  - VISUAL ACUITY REDUCED [None]
  - RETCHING [None]
  - VOMITING [None]
  - SUICIDE ATTEMPT [None]
  - DIZZINESS [None]
  - VISION BLURRED [None]
  - PARAESTHESIA [None]
  - DISTURBANCE IN ATTENTION [None]
  - HEADACHE [None]
  - MULTIPLE DRUG OVERDOSE INTENTIONAL [None]
  - DEPRESSION [None]
  - INSOMNIA [None]
  - MEMORY IMPAIRMENT [None]
